FAERS Safety Report 9135774 (Version 1)
Quarter: 2013Q1

REPORT INFORMATION
  Report Type: Spontaneous
  Country: US (occurrence: US)
  Receive Date: 20130304
  Receipt Date: 20130304
  Transmission Date: 20140127
  Serious: Yes (Hospitalization)
  Sender: FDA-Public Use
  Company Number: US-BAYER-2013-025810

PATIENT
  Sex: Female

DRUGS (7)
  1. PRAZIQUANTEL [Suspect]
     Indication: NEUROCYSTICERCOSIS
     Dosage: DAILY DOSE 50 MG/KG
  2. DECADRON [Concomitant]
     Indication: NEUROLOGICAL SYMPTOM
     Dosage: 16 MG PER DAY
  3. DECADRON [Concomitant]
     Indication: NEUROLOGICAL SYMPTOM
     Dosage: 12 MG PER DAY
  4. DECADRON [Concomitant]
     Indication: NEUROLOGICAL SYMPTOM
     Dosage: 4 MG PER DAY
  5. DECADRON [Concomitant]
     Indication: NEUROLOGICAL SYMPTOM
     Dosage: 8 MG PER DAY
  6. DECADRON [Concomitant]
     Indication: NEUROLOGICAL SYMPTOM
     Dosage: 4 MG PER DAY
  7. DECADRON [Concomitant]
     Indication: NEUROLOGICAL SYMPTOM
     Dosage: 16 MG PER DAY

REACTIONS (6)
  - Headache [Recovered/Resolved]
  - Dizziness [Recovered/Resolved]
  - Muscular weakness [Recovered/Resolved]
  - Hypoaesthesia [Recovered/Resolved]
  - Speech disorder [Recovered/Resolved]
  - Headache [None]
